FAERS Safety Report 11294601 (Version 2)
Quarter: 2015Q3

REPORT INFORMATION
  Report Type: Spontaneous
  Country: JP (occurrence: None)
  Receive Date: 20150721
  Receipt Date: 20150810
  Transmission Date: 20151125
  Serious: Yes (Other)
  Sender: FDA-Public Use
  Company Number: DEP_03196_2015

PATIENT
  Age: 50 Year
  Sex: Male

DRUGS (1)
  1. TAPENTA (TAPENTADOL) [Suspect]
     Active Substance: TAPENTADOL HYDROCHLORIDE
     Indication: CANCER PAIN
     Dosage: (1000 MG QD)
     Route: 048

REACTIONS (2)
  - Prescribed overdose [None]
  - Hypotonic urinary bladder [None]
